FAERS Safety Report 6000298-2 (Version None)
Quarter: 2008Q4

REPORT INFORMATION
  Report Type: 
  Country: None (occurrence: None)
  Receive Date: 20081215
  Receipt Date: 20081204
  Transmission Date: 20090506
  Serious: Yes (Other)
  Sender: FDA-Public Use
  Company Number: PL-ROCHE-600656

PATIENT
  Age: 62 Year
  Sex: Female
  Weight: 80 kg

DRUGS (1)
  1. BONIVA [Suspect]
     Indication: OSTEOPOROSIS
     Route: 048
     Dates: start: 20081201, end: 20081201

REACTIONS (4)
  - ABDOMINAL PAIN [None]
  - ANOREXIA [None]
  - OESOPHAGEAL PAIN [None]
  - VOMITING [None]
